FAERS Safety Report 14319854 (Version 2)
Quarter: 2018Q1

REPORT INFORMATION
  Report Type: Report from Study
  Country: AT (occurrence: AT)
  Receive Date: 20171222
  Receipt Date: 20180123
  Transmission Date: 20180509
  Serious: Yes (Hospitalization, Other)
  Sender: FDA-Public Use
  Company Number: AT-BAUSCH-BL-2017-035377

PATIENT
  Age: 45 Year
  Sex: Male
  Weight: 72 kg

DRUGS (68)
  1. PREDNISOLONE. [Suspect]
     Active Substance: PREDNISOLONE
     Indication: PRODUCT USED FOR UNKNOWN INDICATION
     Route: 048
     Dates: start: 20170603, end: 20170613
  2. PREDNISOLONE. [Suspect]
     Active Substance: PREDNISOLONE
     Route: 048
     Dates: start: 20170618, end: 20170621
  3. PREDNISOLONE. [Suspect]
     Active Substance: PREDNISOLONE
     Route: 048
     Dates: start: 20170622, end: 20170627
  4. PREDNISOLONE. [Suspect]
     Active Substance: PREDNISOLONE
     Route: 048
     Dates: start: 20170714
  5. TRAMADOL HYDROCHLORIDE. [Suspect]
     Active Substance: TRAMADOL HYDROCHLORIDE
     Route: 065
     Dates: start: 20170619, end: 20170619
  6. TRAMADOL HYDROCHLORIDE. [Suspect]
     Active Substance: TRAMADOL HYDROCHLORIDE
     Route: 048
     Dates: start: 20170628, end: 20170706
  7. TRAMADOL HYDROCHLORIDE. [Suspect]
     Active Substance: TRAMADOL HYDROCHLORIDE
     Route: 048
     Dates: start: 20170707, end: 20170711
  8. SODIUM CHLORIDE. [Concomitant]
     Active Substance: SODIUM CHLORIDE
     Route: 048
     Dates: start: 20170703, end: 20170706
  9. TRAMAL RET. [Concomitant]
     Indication: PRODUCT USED FOR UNKNOWN INDICATION
  10. PREDNISOLONE. [Suspect]
     Active Substance: PREDNISOLONE
     Route: 048
     Dates: start: 20170614, end: 20170616
  11. PREDNISOLONE. [Suspect]
     Active Substance: PREDNISOLONE
     Route: 048
     Dates: start: 20170628, end: 20170630
  12. TRAMADOL HYDROCHLORIDE. [Suspect]
     Active Substance: TRAMADOL HYDROCHLORIDE
     Route: 065
     Dates: start: 20170615, end: 20170615
  13. AMISULPRIDE [Suspect]
     Active Substance: AMISULPRIDE
     Route: 065
     Dates: start: 20170706, end: 20170706
  14. CISORDINOL [Suspect]
     Active Substance: ZUCLOPENTHIXOL
     Indication: PRODUCT USED FOR UNKNOWN INDICATION
     Route: 048
     Dates: start: 20170607, end: 20170607
  15. CISORDINOL [Suspect]
     Active Substance: ZUCLOPENTHIXOL
     Route: 065
     Dates: start: 20170622, end: 20170622
  16. TEMESTA (LORAZEPAM) [Concomitant]
     Active Substance: LORAZEPAM
     Route: 065
     Dates: start: 20170603, end: 20170603
  17. PREDNISOLONE. [Suspect]
     Active Substance: PREDNISOLONE
     Route: 048
     Dates: start: 20170617, end: 20170617
  18. TRAMADOL HYDROCHLORIDE. [Suspect]
     Active Substance: TRAMADOL HYDROCHLORIDE
     Indication: PRODUCT USED FOR UNKNOWN INDICATION
     Route: 065
     Dates: start: 20170614, end: 20170614
  19. TRAMADOL HYDROCHLORIDE. [Suspect]
     Active Substance: TRAMADOL HYDROCHLORIDE
     Route: 065
     Dates: start: 20170618, end: 20170618
  20. AMISULPRIDE [Suspect]
     Active Substance: AMISULPRIDE
     Route: 065
     Dates: start: 20170711, end: 20170711
  21. QUETIAPINE FUMARATE. [Suspect]
     Active Substance: QUETIAPINE FUMARATE
     Route: 048
     Dates: start: 20170603, end: 20170705
  22. QUETIAPINE FUMARATE. [Suspect]
     Active Substance: QUETIAPINE FUMARATE
     Route: 065
     Dates: start: 20170621, end: 20170626
  23. QUETIAPINE FUMARATE. [Suspect]
     Active Substance: QUETIAPINE FUMARATE
     Route: 048
     Dates: start: 20170627, end: 20170627
  24. PARACETAMOL, PROPYPHENAZONE, CAFFEINE [Suspect]
     Active Substance: ACETAMINOPHEN\CAFFEINE\PROPYPHENAZONE
     Route: 048
     Dates: start: 20170620, end: 20170705
  25. TEMESTA (LORAZEPAM) [Concomitant]
     Active Substance: LORAZEPAM
     Route: 065
     Dates: start: 20170623, end: 20170623
  26. TEMESTA (LORAZEPAM) [Concomitant]
     Active Substance: LORAZEPAM
     Route: 065
     Dates: start: 20170705, end: 20170705
  27. TRAMADOL HYDROCHLORIDE. [Suspect]
     Active Substance: TRAMADOL HYDROCHLORIDE
     Route: 065
     Dates: start: 20170616, end: 20170617
  28. TRAMADOL HYDROCHLORIDE. [Suspect]
     Active Substance: TRAMADOL HYDROCHLORIDE
     Route: 065
     Dates: start: 20170621, end: 20170621
  29. QUETIAPINE FUMARATE. [Suspect]
     Active Substance: QUETIAPINE FUMARATE
     Indication: PRODUCT USED FOR UNKNOWN INDICATION
     Route: 048
     Dates: start: 20170603, end: 20170620
  30. CISORDINOL [Suspect]
     Active Substance: ZUCLOPENTHIXOL
     Route: 065
     Dates: start: 20170626, end: 20170626
  31. CISORDINOL DEPOT [Suspect]
     Active Substance: ZUCLOPENTHIXOL
     Indication: PRODUCT USED FOR UNKNOWN INDICATION
     Route: 030
  32. TEMESTA (LORAZEPAM) [Concomitant]
     Active Substance: LORAZEPAM
     Route: 065
     Dates: start: 20170701, end: 20170701
  33. PREDNISOLONE. [Suspect]
     Active Substance: PREDNISOLONE
     Route: 048
     Dates: start: 20170711, end: 20170713
  34. QUETIAPINE FUMARATE. [Suspect]
     Active Substance: QUETIAPINE FUMARATE
     Route: 065
     Dates: start: 20170627, end: 20170627
  35. TEMESTA (LORAZEPAM) [Concomitant]
     Active Substance: LORAZEPAM
     Route: 065
     Dates: start: 20170607, end: 20170607
  36. TEMESTA (LORAZEPAM) [Concomitant]
     Active Substance: LORAZEPAM
     Route: 065
     Dates: start: 20170624, end: 20170624
  37. TEMESTA (LORAZEPAM) [Concomitant]
     Active Substance: LORAZEPAM
     Route: 065
     Dates: start: 20170702, end: 20170704
  38. STIOLTO RESPIMAT [Concomitant]
     Active Substance: OLODATEROL HYDROCHLORIDE\TIOTROPIUM BROMIDE MONOHYDRATE
     Indication: PRODUCT USED FOR UNKNOWN INDICATION
     Dosage: DAILY
     Route: 065
     Dates: start: 20170603
  39. PREDNISOLONE. [Suspect]
     Active Substance: PREDNISOLONE
     Route: 048
     Dates: start: 20170630, end: 20170703
  40. PREDNISOLONE. [Suspect]
     Active Substance: PREDNISOLONE
     Route: 048
     Dates: start: 20170704, end: 20170710
  41. TRAMADOL HYDROCHLORIDE. [Suspect]
     Active Substance: TRAMADOL HYDROCHLORIDE
     Route: 065
     Dates: start: 20170620, end: 20170620
  42. AMISULPRIDE [Suspect]
     Active Substance: AMISULPRIDE
     Route: 065
     Dates: start: 20170710, end: 20170710
  43. PARACETAMOL, PROPYPHENAZONE, CAFFEINE [Suspect]
     Active Substance: ACETAMINOPHEN\CAFFEINE\PROPYPHENAZONE
     Indication: PRODUCT USED FOR UNKNOWN INDICATION
     Route: 048
     Dates: start: 20170617, end: 20170621
  44. PARACETAMOL, PROPYPHENAZONE, CAFFEINE [Suspect]
     Active Substance: ACETAMINOPHEN\CAFFEINE\PROPYPHENAZONE
     Route: 048
     Dates: start: 20170709, end: 20170709
  45. TEMESTA (LORAZEPAM) [Concomitant]
     Active Substance: LORAZEPAM
     Indication: PRODUCT USED FOR UNKNOWN INDICATION
     Route: 048
     Dates: start: 20170602, end: 20170602
  46. TEMESTA (LORAZEPAM) [Concomitant]
     Active Substance: LORAZEPAM
     Route: 065
     Dates: start: 20170630, end: 20170630
  47. TEMESTA (LORAZEPAM) [Concomitant]
     Active Substance: LORAZEPAM
     Route: 065
     Dates: start: 20170706, end: 20170710
  48. ALVESCO [Concomitant]
     Active Substance: CICLESONIDE
     Indication: PRODUCT USED FOR UNKNOWN INDICATION
     Route: 065
  49. QUETIAPINE FUMARATE. [Suspect]
     Active Substance: QUETIAPINE FUMARATE
     Route: 048
     Dates: start: 20170628, end: 20170710
  50. QUETIAPINE FUMARATE. [Suspect]
     Active Substance: QUETIAPINE FUMARATE
     Route: 048
     Dates: start: 20170711, end: 20170711
  51. CISORDINOL [Suspect]
     Active Substance: ZUCLOPENTHIXOL
     Route: 065
     Dates: start: 20170623, end: 20170625
  52. CISORDINOL [Suspect]
     Active Substance: ZUCLOPENTHIXOL
     Route: 065
     Dates: start: 20170627, end: 20170706
  53. CISORDINOL [Suspect]
     Active Substance: ZUCLOPENTHIXOL
     Route: 065
     Dates: start: 20170710, end: 20170710
  54. TRAZODONE HYDROCHLORIDE. [Suspect]
     Active Substance: TRAZODONE HYDROCHLORIDE
     Indication: PRODUCT USED FOR UNKNOWN INDICATION
     Route: 048
     Dates: start: 20170602, end: 20170703
  55. NERISONA [Concomitant]
     Active Substance: DIFLUCORTOLONE VALERATE
     Indication: PRODUCT USED FOR UNKNOWN INDICATION
     Route: 061
     Dates: start: 20170611, end: 20170623
  56. CORTISONE [Concomitant]
     Active Substance: CORTISONE\HYDROCORTISONE
     Indication: SYSTEMIC LUPUS ERYTHEMATOSUS
     Route: 048
  57. TEMESTA (LORAZEPAM) [Concomitant]
     Active Substance: LORAZEPAM
     Route: 065
     Dates: start: 20170604, end: 20170606
  58. TEMESTA (LORAZEPAM) [Concomitant]
     Active Substance: LORAZEPAM
     Route: 065
     Dates: start: 20170608, end: 20170622
  59. TEMESTA (LORAZEPAM) [Concomitant]
     Active Substance: LORAZEPAM
     Route: 065
     Dates: start: 20170627, end: 20170628
  60. TEMESTA (LORAZEPAM) [Concomitant]
     Active Substance: LORAZEPAM
     Route: 065
     Dates: start: 20170629, end: 20170629
  61. TRAMADOL HYDROCHLORIDE. [Suspect]
     Active Substance: TRAMADOL HYDROCHLORIDE
     Route: 065
     Dates: start: 20170621, end: 20170627
  62. AMISULPRIDE [Suspect]
     Active Substance: AMISULPRIDE
     Indication: PRODUCT USED FOR UNKNOWN INDICATION
     Route: 048
     Dates: start: 20170627, end: 20170705
  63. AMISULPRIDE [Suspect]
     Active Substance: AMISULPRIDE
     Route: 065
     Dates: start: 20170707, end: 20170709
  64. QUETIAPINE FUMARATE. [Suspect]
     Active Substance: QUETIAPINE FUMARATE
     Route: 048
     Dates: start: 20170620, end: 20170621
  65. NERISONA [Concomitant]
     Active Substance: DIFLUCORTOLONE VALERATE
     Dosage: DAILY
     Route: 065
     Dates: start: 20170628, end: 20170710
  66. SODIUM CHLORIDE. [Concomitant]
     Active Substance: SODIUM CHLORIDE
     Indication: PRODUCT USED FOR UNKNOWN INDICATION
     Route: 048
     Dates: start: 20170621, end: 20170623
  67. POTASSIUM CHLORIDE. [Concomitant]
     Active Substance: POTASSIUM CHLORIDE
     Indication: PRODUCT USED FOR UNKNOWN INDICATION
     Route: 048
     Dates: start: 20170707, end: 20170710
  68. PANTOLOC [Concomitant]
     Active Substance: PANTOPRAZOLE SODIUM
     Indication: PRODUCT USED FOR UNKNOWN INDICATION
     Route: 048
     Dates: start: 20170615

REACTIONS (2)
  - Hepatic enzyme increased [Recovered/Resolved]
  - Agranulocytosis [Recovered/Resolved]

NARRATIVE: CASE EVENT DATE: 20170703
